FAERS Safety Report 10456264 (Version 3)
Quarter: 2016Q2

REPORT INFORMATION
  Report Type: Spontaneous
  Country: AT (occurrence: AT)
  Receive Date: 20140916
  Receipt Date: 20160530
  Transmission Date: 20160815
  Serious: Yes (Hospitalization, Disabling, Other)
  Sender: FDA-Public Use
  Company Number: AT-JNJFOC-20140215273

PATIENT
  Age: 89 Year
  Sex: Female

DRUGS (12)
  1. TRENTAL [Concomitant]
     Active Substance: PENTOXIFYLLINE
     Route: 065
     Dates: start: 20140106, end: 20140110
  2. CALCIUM GLYCEROPHOSPHATE\CELLULOSE\POLYETHYLENE GLYCOL\SACCHARIN SODIUM\SODIUM HYDROXIDE\SODIUM LAURYL SULFATE\SODIUM MAGNESIUM SILICATE\SODIUM MONOFLUOROPHOSPHATE\SORBITOL\WATER [Suspect]
     Active Substance: CALCIUM GLYCEROPHOSPHATE\POLYETHYLENE GLYCOLS\POWDERED CELLULOSE\SACCHARIN SODIUM DIHYDRATE\SODIUM HYDROXIDE\SODIUM LAURYL SULFATE\SODIUM MAGNESIUM SILICATE\SODIUM MONOFLUOROPHOSPHATE\SORBITOL\WATER
     Indication: PRODUCT USED FOR UNKNOWN INDICATION
     Route: 065
     Dates: start: 20140106, end: 20140124
  3. RISPERDAL [Suspect]
     Active Substance: RISPERIDONE
     Indication: DELUSIONAL DISORDER, UNSPECIFIED TYPE
     Route: 065
     Dates: start: 20140106, end: 20140124
  4. DAFLON [Suspect]
     Active Substance: DIOSMIN\HESPERIDIN
     Indication: PRODUCT USED FOR UNKNOWN INDICATION
     Route: 065
     Dates: start: 20140106, end: 20140123
  5. PANTOLOC [Suspect]
     Active Substance: PANTOPRAZOLE SODIUM
     Indication: PRODUCT USED FOR UNKNOWN INDICATION
     Route: 065
     Dates: start: 20140106, end: 20140124
  6. ASPIRIN. [Suspect]
     Active Substance: ASPIRIN
     Indication: PRODUCT USED FOR UNKNOWN INDICATION
     Route: 065
     Dates: start: 20140115, end: 20140115
  7. THROMBO ASS [Concomitant]
     Active Substance: ASPIRIN
     Route: 065
     Dates: start: 20140106, end: 20140110
  8. ATACAND [Concomitant]
     Active Substance: CANDESARTAN CILEXETIL
     Route: 065
     Dates: start: 20140106, end: 20140109
  9. DAFLON [Suspect]
     Active Substance: DIOSMIN\HESPERIDIN
     Indication: PRODUCT USED FOR UNKNOWN INDICATION
     Route: 065
  10. MAXI-KALZ VIT D3 [Suspect]
     Active Substance: CALCIUM CARBONATE\CHOLECALCIFEROL
     Indication: PRODUCT USED FOR UNKNOWN INDICATION
     Route: 065
     Dates: start: 20140106, end: 20140124
  11. UROSIN [Suspect]
     Active Substance: ALLOPURINOL
     Indication: PRODUCT USED FOR UNKNOWN INDICATION
     Route: 065
     Dates: start: 20140106, end: 20140124
  12. ASPIRIN. [Suspect]
     Active Substance: ASPIRIN
     Indication: PRODUCT USED FOR UNKNOWN INDICATION
     Route: 065
     Dates: start: 20140116, end: 20140124

REACTIONS (7)
  - Decubitus ulcer [Unknown]
  - Skin erosion [Unknown]
  - Haematoma [Unknown]
  - Dehydration [Unknown]
  - Weight increased [Unknown]
  - Oedema peripheral [Recovering/Resolving]
  - Immobile [Unknown]

NARRATIVE: CASE EVENT DATE: 20140124
